FAERS Safety Report 15122387 (Version 1)
Quarter: 2018Q3

REPORT INFORMATION
  Report Type: Spontaneous
  Country: US (occurrence: US)
  Receive Date: 20180709
  Receipt Date: 20180709
  Transmission Date: 20181010
  Serious: No
  Sender: FDA-Public Use
  Company Number: US-BAUSCH-BL-2018-014022

PATIENT
  Age: 55 Year
  Sex: Female
  Weight: 77.18 kg

DRUGS (1)
  1. MOVIPREP [Suspect]
     Active Substance: ASCORBIC ACID\POLYETHYLENE GLYCOL 3350\POTASSIUM CHLORIDE\SODIUM ASCORBATE\SODIUM CHLORIDE\SODIUM SULFATE
     Indication: COLONOSCOPY
     Route: 065
     Dates: start: 20180509, end: 2018

REACTIONS (1)
  - Regurgitation [Recovered/Resolved]

NARRATIVE: CASE EVENT DATE: 20180509
